FAERS Safety Report 24036965 (Version 1)
Quarter: 2024Q3

REPORT INFORMATION
  Report Type: Spontaneous
  Country: US (occurrence: US)
  Receive Date: 20240701
  Receipt Date: 20240701
  Transmission Date: 20241016
  Serious: Yes (Other)
  Sender: HIKMA
  Company Number: HIKM2403084

PATIENT

DRUGS (1)
  1. PREDNISONE [Suspect]
     Active Substance: PREDNISONE
     Indication: Product used for unknown indication
     Dosage: 10 MILLIGRAM
     Route: 065

REACTIONS (6)
  - Vasculitis [Unknown]
  - Malaise [Unknown]
  - Near death experience [Unknown]
  - Chest pain [Unknown]
  - Hypoaesthesia [Unknown]
  - Withdrawal syndrome [Unknown]
